FAERS Safety Report 7204550 (Version 5)
Quarter: 2012Q4

REPORT INFORMATION
  Report Type: 
  Country: US (occurrence: US)
  Receive Date: 20091208
  Receipt Date: 20121226
  Transmission Date: 20130627
  Serious: Yes (Hospitalization, Other)
  Sender: FDA-Public Use
  Company Number: US-BRISTOL-MYERS SQUIBB COMPANY-14880033

PATIENT
  Age: 50 Year
  Sex: Female
  Weight: 113.38 kg

DRUGS (28)
  1. ORENCIA FOR INJ [Suspect]
     Indication: RHEUMATOID ARTHRITIS
     Dosage: Last dose:29Sep09,4Oct12
Also taken as conmed 500mg IVB on 03Nov09
Dose incrd 1.5grams (3mths ago)
     Route: 042
     Dates: start: 20090609
  2. ATENOLOL [Concomitant]
     Route: 048
     Dates: start: 20091103
  3. AVINZA [Concomitant]
     Route: 048
     Dates: start: 20091103
  4. LASIX [Concomitant]
     Route: 048
     Dates: start: 20091103
  5. LEVOXYL [Concomitant]
  6. POTASSIUM CHLORIDE [Concomitant]
     Route: 048
     Dates: start: 20091103
  7. FOLIC ACID [Concomitant]
     Route: 048
     Dates: start: 20091103
  8. METHOTREXATE [Concomitant]
     Dosage: Taken on 3NOv2009
     Route: 058
     Dates: start: 20090928
  9. OSCAL D [Concomitant]
     Dosage: 1 Df-1 tab
     Route: 048
     Dates: start: 20091103
  10. EFFEXOR XR [Concomitant]
     Route: 047
     Dates: start: 20091103
  11. MEVACOR [Concomitant]
     Route: 048
     Dates: start: 20091103
  12. DOXEPIN HCL [Concomitant]
     Route: 048
     Dates: start: 20091103
  13. PROAIR HFA [Concomitant]
     Dosage: Inhaler
2Df=2puffs
Every 6hrs
     Route: 055
     Dates: start: 20091103
  14. SYMBICORT [Concomitant]
     Dosage: Inhaler
     Route: 055
  15. LORAZEPAM [Concomitant]
  16. OXYCODONE [Concomitant]
  17. TYLENOL PM [Concomitant]
  18. SYNTHROID [Concomitant]
     Route: 048
     Dates: start: 20091103
  19. PRILOSEC [Concomitant]
     Route: 048
     Dates: start: 20091103
  20. KLOR-CON [Concomitant]
  21. CALCIUM [Concomitant]
  22. VITAMIN D [Concomitant]
  23. LOVASTATIN [Concomitant]
  24. VENTOLIN INHALER [Concomitant]
  25. MULTIVITAMIN [Concomitant]
  26. FLU VACCINE [Concomitant]
     Dosage: Seasonal flu vaccine.
     Dates: start: 20090928
  27. POTASSIUM [Concomitant]
  28. PROMETHAZINE [Concomitant]

REACTIONS (11)
  - Asthma [Unknown]
  - Pneumonia [Unknown]
  - Cough [Unknown]
  - Nausea [Not Recovered/Not Resolved]
  - Vomiting [Unknown]
  - Diarrhoea [Unknown]
  - Abdominal pain [Unknown]
  - White blood cell count increased [Not Recovered/Not Resolved]
  - Urinary tract infection [Unknown]
  - Drug ineffective [Unknown]
  - Bilirubinuria [Unknown]
